FAERS Safety Report 6694783-8 (Version None)
Quarter: 2010Q2

REPORT INFORMATION
  Report Type: 
  Country: None (occurrence: None)
  Receive Date: 20100423
  Receipt Date: 20100413
  Transmission Date: 20101027
  Serious: Yes (Other)
  Sender: FDA-Public Use
  Company Number: D0067253A

PATIENT
  Age: 82 Year
  Sex: Female

DRUGS (1)
  1. CEFUHEXAL [Suspect]
     Dosage: 250MG TWICE PER DAY
     Route: 048

REACTIONS (1)
  - EPILEPSY [None]
